FAERS Safety Report 5494872-X (Version None)
Quarter: 2007Q4

REPORT INFORMATION
  Report Type: 
  Country: None (occurrence: None)
  Receive Date: 20071024
  Receipt Date: 20071015
  Transmission Date: 20080405
  Serious: Yes (Hospitalization)
  Sender: FDA-Public Use
  Company Number: FR-ASTRAZENECA-2007CG01466

PATIENT
  Age: 22980 Day
  Sex: Male
  Weight: 110 kg

DRUGS (9)
  1. CRESTOR [Suspect]
     Indication: HYPERCHOLESTEROLAEMIA
     Route: 048
     Dates: start: 20070523, end: 20070927
  2. OMEPRAZOLE [Concomitant]
     Route: 065
  3. GLUCOPHAGE [Concomitant]
     Indication: TYPE 2 DIABETES MELLITUS
  4. ACARBOSE [Concomitant]
     Indication: TYPE 2 DIABETES MELLITUS
  5. COTAREG [Concomitant]
  6. SECTRAL [Concomitant]
  7. CORDARONE [Concomitant]
  8. PREVISCAN [Concomitant]
  9. ASPEGIC 325 [Concomitant]

REACTIONS (3)
  - LIGAMENT DISORDER [None]
  - MUSCULAR WEAKNESS [None]
  - MYALGIA [None]
